FAERS Safety Report 14284156 (Version 2)
Quarter: 2018Q2

REPORT INFORMATION
  Report Type: Spontaneous
  Country: TW (occurrence: TW)
  Receive Date: 20171214
  Receipt Date: 20180403
  Transmission Date: 20180711
  Serious: Yes (Hospitalization, Other)
  Sender: FDA-Public Use
  Company Number: TW-BRISTOL-MYERS SQUIBB COMPANY-BMS-2017-112052

PATIENT
  Age: 64 Year
  Sex: Male
  Weight: 54.2 kg

DRUGS (1)
  1. OPDIVO [Suspect]
     Active Substance: NIVOLUMAB
     Indication: HEPATOCELLULAR CARCINOMA
     Dosage: 3 MG/KG, Q2WK
     Route: 042
     Dates: start: 20171020, end: 20171123

REACTIONS (7)
  - Oedema [Unknown]
  - Aspartate aminotransferase increased [Unknown]
  - Alanine aminotransferase increased [Unknown]
  - Ascites [Unknown]
  - Decreased appetite [Unknown]
  - Jaundice [Unknown]
  - Weight decreased [Unknown]

NARRATIVE: CASE EVENT DATE: 20171205
